FAERS Safety Report 11784993 (Version 2)
Quarter: 2017Q1

REPORT INFORMATION
  Report Type: Spontaneous
  Country: IN (occurrence: IN)
  Receive Date: 20151130
  Receipt Date: 20170130
  Transmission Date: 20170428
  Serious: Yes (Death, Other)
  Sender: FDA-Public Use
  Company Number: IN-SUN PHARMACEUTICAL INDUSTRIES LTD-2015R1-106922

PATIENT
  Age: 17 Year
  Sex: Male

DRUGS (2)
  1. TEMOZOLOMIDE. [Suspect]
     Active Substance: TEMOZOLOMIDE
     Indication: GLIOBLASTOMA MULTIFORME
     Dosage: 100 MG, DAILY
     Route: 065
  2. TEMOZOLOMIDE. [Suspect]
     Active Substance: TEMOZOLOMIDE
     Dosage: CYCLE 1-220 MG (150 MG/M2) AND CYCLES 2 TO 12-310 MG (200 MG/M2) DAYS 1-5 REPEATED EVERY 28 DAYS
     Route: 065
     Dates: end: 200907

REACTIONS (1)
  - Metastasis [Fatal]
